FAERS Safety Report 9814290 (Version 1)
Quarter: 2014Q1

REPORT INFORMATION
  Report Type: Spontaneous
  Country: DE (occurrence: DE)
  Receive Date: 20140113
  Receipt Date: 20140113
  Transmission Date: 20141002
  Serious: Yes (Other)
  Sender: FDA-Public Use
  Company Number: GXKR2014DE000517

PATIENT
  Age: 67 Year
  Sex: Female
  Weight: 40 kg

DRUGS (1)
  1. DOXYHEXAL [Suspect]
     Dosage: 200 MG, QD
     Route: 065

REACTIONS (1)
  - Gastric haemorrhage [Unknown]
